FAERS Safety Report 5154734-4 (Version None)
Quarter: 2006Q4

REPORT INFORMATION
  Report Type: 
  Country: None (occurrence: None)
  Receive Date: 20061115
  Receipt Date: 20061115
  Transmission Date: 20070319
  Serious: Yes (Hospitalization)
  Sender: FDA-Public Use
  Company Number: None

PATIENT
  Sex: Female

DRUGS (4)
  1. CAPECITABINE [Suspect]
     Indication: RECTAL CANCER
     Dosage: 42000.00
     Dates: start: 20060821, end: 20060907
  2. OXALIPLATIN [Suspect]
     Dosage: 85.00
     Dates: start: 20060821
  3. OXALIPLATIN [Suspect]
     Dosage: 85.00
     Dates: start: 20060905
  4. AVASTIN [Suspect]
     Dosage: 5.00

REACTIONS (10)
  - BODY TEMPERATURE INCREASED [None]
  - DIARRHOEA [None]
  - DIARRHOEA HAEMORRHAGIC [None]
  - DRUG TOXICITY [None]
  - ENTEROCOLITIS INFECTIOUS [None]
  - FAECES DISCOLOURED [None]
  - HAEMATOCHEZIA [None]
  - INTERNATIONAL NORMALISED RATIO ABNORMAL [None]
  - PLATELET COUNT ABNORMAL [None]
  - STAPHYLOCOCCAL INFECTION [None]
